FAERS Safety Report 6107777-8 (Version None)
Quarter: 2009Q1

REPORT INFORMATION
  Report Type: 
  Country: None (occurrence: None)
  Receive Date: 20090309
  Receipt Date: 20090303
  Transmission Date: 20090719
  Serious: Yes (Hospitalization)
  Sender: FDA-Public Use
  Company Number: B0557953A

PATIENT
  Age: 10 Year
  Sex: Male
  Weight: 32.5 kg

DRUGS (4)
  1. RELENZA [Suspect]
     Indication: INFLUENZA
     Dosage: 10MG TWICE PER DAY
     Route: 055
     Dates: start: 20090128
  2. KLARICID [Concomitant]
     Route: 048
     Dates: end: 20090128
  3. LOXONIN [Concomitant]
     Route: 048
     Dates: end: 20090128
  4. CALONAL [Concomitant]
     Route: 048
     Dates: end: 20090128

REACTIONS (2)
  - ABNORMAL BEHAVIOUR [None]
  - NO THERAPEUTIC RESPONSE [None]
